FAERS Safety Report 7968773-9 (Version None)
Quarter: 2011Q4

REPORT INFORMATION
  Report Type: 
  Country: None (occurrence: None)
  Receive Date: 20111209
  Receipt Date: 20111125
  Transmission Date: 20120403
  Serious: Yes (Death)
  Sender: FDA-Public Use
  Company Number: AT-CELGENEUS-009-21880-11113553

PATIENT
  Age: 83 Year
  Sex: Female
  Weight: 72 kg

DRUGS (2)
  1. DEXAMETHASONE [Concomitant]
     Indication: MULTIPLE MYELOMA
     Route: 065
     Dates: start: 20101230, end: 20110509
  2. REVLIMID [Suspect]
     Indication: MULTIPLE MYELOMA
     Dosage: 25 MILLIGRAM
     Route: 048
     Dates: start: 20101230, end: 20110509

REACTIONS (2)
  - MULTIPLE MYELOMA [None]
  - LEUKAEMIA PLASMACYTIC [None]
